FAERS Safety Report 17429822 (Version 1)
Quarter: 2020Q1

REPORT INFORMATION
  Report Type: Spontaneous
  Country: US (occurrence: US)
  Receive Date: 20200203
  Receipt Date: 20200203
  Transmission Date: 20200409
  Serious: No
  Sender: FDA-Public Use
  Company Number: None

PATIENT
  Age: 79 Year
  Sex: Female
  Weight: 45.81 kg

DRUGS (1)
  1. PROLIA [Suspect]
     Active Substance: DENOSUMAB
     Indication: OSTEOPOROSIS
     Route: 042
     Dates: start: 20151001, end: 20190620

REACTIONS (4)
  - Alopecia [None]
  - Therapy cessation [None]
  - Pain in jaw [None]
  - Abdominal pain upper [None]

NARRATIVE: CASE EVENT DATE: 20190701
